FAERS Safety Report 6407366-1 (Version None)
Quarter: 2009Q4

REPORT INFORMATION
  Report Type: 
  Country: None (occurrence: None)
  Receive Date: 20091014
  Receipt Date: 20090929
  Transmission Date: 20100525
  Serious: Yes (Other)
  Sender: FDA-Public Use
  Company Number: DSM-2009-01473

PATIENT
  Age: 84 Year
  Sex: Female

DRUGS (2)
  1. AMLODIPINE BESYLATE AND OLMESARTAN MEDOXOMIL [Suspect]
     Indication: HYPERTENSION
     Dosage: 40/10 MG (1 IN 1 D), ORAL; 20/5 MG (1 IN 1 D), ORAL
     Route: 048
     Dates: start: 20090424, end: 20090429
  2. AMLODIPINE BESYLATE AND OLMESARTAN MEDOXOMIL [Suspect]
     Indication: HYPERTENSION
     Dosage: 40/10 MG (1 IN 1 D), ORAL; 20/5 MG (1 IN 1 D), ORAL
     Route: 048
     Dates: start: 20090429, end: 20090508

REACTIONS (3)
  - ABDOMINAL PAIN [None]
  - HOT FLUSH [None]
  - SYNCOPE [None]
